FAERS Safety Report 11552426 (Version 1)
Quarter: 2015Q3

REPORT INFORMATION
  Report Type: Spontaneous
  Country: US (occurrence: None)
  Receive Date: 20150924
  Receipt Date: 20150924
  Transmission Date: 20151125
  Serious: No
  Sender: FDA-Public Use
  Company Number: None

PATIENT
  Age: 74 Year
  Sex: Female

DRUGS (19)
  1. FISH OIL [Concomitant]
     Active Substance: FISH OIL
  2. LIPITOR [Suspect]
     Active Substance: ATORVASTATIN CALCIUM
  3. ZETIA [Concomitant]
     Active Substance: EZETIMIBE
  4. FENOFIBRATE. [Concomitant]
     Active Substance: FENOFIBRATE
  5. TOPROL XL [Concomitant]
     Active Substance: METOPROLOL SUCCINATE
  6. RESTASIS [Concomitant]
     Active Substance: CYCLOSPORINE
  7. VITAMIN E [Concomitant]
     Active Substance: .ALPHA.-TOCOPHEROL
  8. NASACORT [Suspect]
     Active Substance: TRIAMCINOLONE ACETONIDE
     Indication: MULTIPLE ALLERGIES
  9. HCTZ [Concomitant]
     Active Substance: HYDROCHLOROTHIAZIDE
  10. FOLIC ACID. [Concomitant]
     Active Substance: FOLIC ACID
  11. LOVEXYL [Concomitant]
  12. VITAMIN D3 [Concomitant]
     Active Substance: CHOLECALCIFEROL
  13. PRINIVIL [Concomitant]
     Active Substance: LISINOPRIL
  14. CITRACAL [Concomitant]
     Active Substance: CALCIUM CITRATE
  15. PROBIOTIC [Concomitant]
     Active Substance: PROBIOTICS NOS
  16. CALAN SR [Concomitant]
     Active Substance: VERAPAMIL HYDROCHLORIDE
  17. CRESTOR [Concomitant]
     Active Substance: ROSUVASTATIN CALCIUM
  18. MAGNESIUM OXIDE. [Concomitant]
     Active Substance: MAGNESIUM OXIDE
  19. ALLERGY MEDICATION [Concomitant]
     Active Substance: DIPHENHYDRAMINE HYDROCHLORIDE

REACTIONS (1)
  - Vision blurred [None]

NARRATIVE: CASE EVENT DATE: 20150723
